FAERS Safety Report 8953422 (Version 1)
Quarter: 2012Q4

REPORT INFORMATION
  Report Type: 
  Country: MX (occurrence: MX)
  Receive Date: 20121206
  Receipt Date: 20121206
  Transmission Date: 20130627
  Serious: Yes (Other)
  Sender: FDA-Public Use
  Company Number: MX-JNJFOC-20121114186

PATIENT
  Age: 36 Year
  Sex: Female

DRUGS (5)
  1. DOXORUBICIN [Suspect]
     Indication: RHABDOMYOSARCOMA
     Dosage: 3 cycles
     Route: 042
  2. DOXORUBICIN [Suspect]
     Indication: RHABDOMYOSARCOMA
     Dosage: 4th cycle
     Route: 042
     Dates: start: 201103
  3. CISPLATIN [Suspect]
     Indication: RHABDOMYOSARCOMA
     Dosage: 4th cycle
     Route: 065
     Dates: start: 201103
  4. CISPLATIN [Suspect]
     Indication: RHABDOMYOSARCOMA
     Dosage: 3 cycles
     Route: 065
  5. RADIOTHERAPY [Suspect]
     Indication: RHABDOMYOSARCOMA
     Dosage: 51.5 gray (Gy)
     Route: 065

REACTIONS (4)
  - Cardiac failure [Unknown]
  - Hypokinesia [Unknown]
  - Myocardial infarction [Unknown]
  - Off label use [Unknown]
